FAERS Safety Report 9479667 (Version 5)
Quarter: 2013Q3

REPORT INFORMATION
  Report Type: Spontaneous
  Country: FR (occurrence: FR)
  Receive Date: 20130827
  Receipt Date: 20130913
  Transmission Date: 20140515
  Serious: Yes (Hospitalization, Other)
  Sender: FDA-Public Use
  Company Number: FR-PFIZER INC-2013243309

PATIENT
  Age: 80 Year
  Sex: Female

DRUGS (13)
  1. XANAX [Suspect]
     Indication: AGITATION
     Dosage: 0.25 MG, UNK
     Route: 048
     Dates: start: 20130712
  2. XANAX [Suspect]
     Indication: CONFUSIONAL STATE
  3. AVLOCARDYL [Suspect]
     Indication: HYPERTENSION
     Dosage: 160 MG, 1X/DAY
     Route: 048
  4. CEFTRIAXONE SODIUM [Suspect]
     Indication: INFECTION
     Dosage: UNK
     Route: 042
     Dates: start: 20130701, end: 20130713
  5. RISPERDALORO [Suspect]
     Indication: ABNORMAL BEHAVIOUR
     Dosage: 0.5 MG, DAILY
     Route: 048
     Dates: start: 20130713, end: 20130715
  6. TRIVASTAL [Suspect]
     Indication: TREMOR
     Dosage: 50 MG, 2X/DAY
     Route: 048
     Dates: end: 20130718
  7. LASILIX [Suspect]
     Indication: HYPERTENSION
     Dosage: 40 MG, DAILY
     Route: 048
  8. PREVISCAN [Suspect]
     Indication: PROPHYLAXIS
     Dosage: 0.25 DF (20MG) DAILY
     Route: 048
  9. INEXIUM [Suspect]
     Indication: PROPHYLAXIS
     Dosage: 20 MG, DAILY
     Route: 048
  10. ATARAX [Suspect]
     Indication: AGITATION
     Dosage: 25 MG, UNK
     Dates: start: 20130704, end: 20130710
  11. ATARAX [Suspect]
     Dosage: UNK
     Dates: start: 20130710, end: 20130713
  12. NORSET [Suspect]
     Indication: AGITATION
     Dosage: 15 MG, 1X/DAY
     Dates: start: 20130705
  13. IMOVANE [Suspect]
     Dosage: 7.5 MG, 1X/DAY
     Route: 048
     Dates: start: 20130705

REACTIONS (1)
  - Neutropenia [Not Recovered/Not Resolved]
